FAERS Safety Report 5788133-9 (Version None)
Quarter: 2008Q2

REPORT INFORMATION
  Report Type: 
  Country: None (occurrence: None)
  Receive Date: 20080625
  Receipt Date: 20080618
  Transmission Date: 20081010
  Serious: No
  Sender: FDA-Public Use
  Company Number: US-BOEHRINGER INGELHEIM GMBH, GERMANY-2008-BP-09516BP

PATIENT
  Age: 60 Year
  Sex: Female

DRUGS (3)
  1. ZANTAC 150 [Suspect]
     Indication: DYSPEPSIA
     Route: 048
     Dates: start: 20080609
  2. NEURONTIN [Concomitant]
     Indication: HEADACHE
  3. SYNTHROID [Concomitant]

REACTIONS (1)
  - DIARRHOEA [None]
